FAERS Safety Report 5492376-1 (Version None)
Quarter: 2007Q4

REPORT INFORMATION
  Report Type: 
  Country: None (occurrence: None)
  Receive Date: 20071015
  Receipt Date: 20070814
  Transmission Date: 20080405
  Serious: No
  Sender: FDA-Public Use
  Company Number: 2007SP002849

PATIENT
  Age: 65 Year
  Sex: Male

DRUGS (3)
  1. LUNESTA [Suspect]
     Indication: INSOMNIA
     Dosage: 3 MG;1X;ORAL, 4.5 MG;HS;ORAL, 6 MG;HS;ORAL
     Route: 048
     Dates: start: 20070807, end: 20070807
  2. LUNESTA [Suspect]
     Indication: INSOMNIA
     Dosage: 3 MG;1X;ORAL, 4.5 MG;HS;ORAL, 6 MG;HS;ORAL
     Route: 048
     Dates: start: 20070809, end: 20070812
  3. LUNESTA [Suspect]
     Indication: INSOMNIA
     Dosage: 3 MG;1X;ORAL, 4.5 MG;HS;ORAL, 6 MG;HS;ORAL
     Route: 048
     Dates: start: 20070813

REACTIONS (2)
  - DRUG INEFFECTIVE [None]
  - INSOMNIA [None]
